FAERS Safety Report 13354819 (Version 1)
Quarter: 2017Q1

REPORT INFORMATION
  Report Type: Spontaneous
  Country: US (occurrence: US)
  Receive Date: 20170321
  Receipt Date: 20170321
  Transmission Date: 20170429
  Serious: No
  Sender: FDA-Public Use
  Company Number: US-PFIZER INC-2017118712

PATIENT
  Sex: Male

DRUGS (1)
  1. ADVIL COLD AND SINUS [Suspect]
     Active Substance: IBUPROFEN\PSEUDOEPHEDRINE HYDROCHLORIDE
     Dosage: UNK, UNK ^TAKEN NINE OR SO^
     Route: 048

REACTIONS (4)
  - Product difficult to swallow [Unknown]
  - Dysphagia [Unknown]
  - Product size issue [Unknown]
  - Foreign body [Unknown]
